FAERS Safety Report 10110717 (Version 1)
Quarter: 2014Q2

REPORT INFORMATION
  Report Type: Spontaneous
  Country: US (occurrence: None)
  Receive Date: 20140424
  Receipt Date: 20140424
  Transmission Date: 20141212
  Serious: No
  Sender: FDA-Public Use
  Company Number: None

PATIENT
  Age: 55 Year
  Sex: Female
  Weight: 79.38 kg

DRUGS (2)
  1. LIDOCAINE 5% [Suspect]
     Indication: ARTHRALGIA
     Dosage: APPLY 2 PATCHES TO AFFECTED AR, ONCE DAILY, APPLIED AS MEDICATED PATCH TO SKIN
     Dates: start: 20140201, end: 20140423
  2. LIDOCAINE 5% [Suspect]
     Indication: BONE PAIN
     Dosage: APPLY 2 PATCHES TO AFFECTED AR, ONCE DAILY, APPLIED AS MEDICATED PATCH TO SKIN
     Dates: start: 20140201, end: 20140423

REACTIONS (2)
  - Product adhesion issue [None]
  - Product quality issue [None]
